FAERS Safety Report 6470052-6 (Version None)
Quarter: 2009Q4

REPORT INFORMATION
  Report Type: 
  Country: None (occurrence: None)
  Receive Date: 20091203
  Receipt Date: 20080505
  Transmission Date: 20100525
  Serious: Yes (Hospitalization, Other)
  Sender: FDA-Public Use
  Company Number: CA-ELI_LILLY_AND_COMPANY-CA200711000761

PATIENT
  Sex: Female
  Weight: 67 kg

DRUGS (15)
  1. PEMETREXED [Suspect]
     Indication: NEUROENDOCRINE CARCINOMA
     Dosage: 500 MG/M2, OTHER
     Route: 042
     Dates: start: 20070328, end: 20070328
  2. PEMETREXED [Suspect]
     Dosage: 400 MG/M2, OTHER
     Route: 042
     Dates: start: 20070514, end: 20070816
  3. PEMETREXED [Suspect]
     Dosage: 400 MG/M2, OTHER
     Route: 042
     Dates: start: 20070904, end: 20071109
  4. SUNITINIB MALATE [Suspect]
     Indication: NEUROENDOCRINE CARCINOMA
     Dosage: 37.5 MG, OTHER
     Route: 048
     Dates: start: 20070329, end: 20070416
  5. SUNITINIB MALATE [Suspect]
     Dosage: 37.5 MG, OTHER
     Route: 048
     Dates: start: 20070514, end: 20070812
  6. SUNITINIB MALATE [Suspect]
     Dosage: 25 MG, OTHER
     Route: 048
     Dates: start: 20070816, end: 20071201
  7. SUNITINIB MALATE [Suspect]
     Dosage: UNK, UNK
     Dates: start: 20071201, end: 20071205
  8. FOLIC ACID [Concomitant]
     Dosage: UNK, UNK
     Route: 048
     Dates: start: 20070323
  9. VITAMIN B-12 [Concomitant]
     Dates: start: 20070514
  10. OMEPRAZOLE [Concomitant]
     Dosage: UNK, UNK
     Route: 048
     Dates: start: 20070411
  11. NYSTATIN [Concomitant]
     Route: 061
     Dates: start: 20070813
  12. HYDROCORTISONE [Concomitant]
     Dates: start: 20070625
  13. BOOST [Concomitant]
     Dates: start: 20071011
  14. METOCLOPRAMIDE [Concomitant]
     Route: 048
     Dates: start: 20071019
  15. MORPHINE [Concomitant]
     Route: 048
     Dates: start: 20071119

REACTIONS (3)
  - DIARRHOEA [None]
  - PANCREATITIS [None]
  - VOMITING [None]
